FAERS Safety Report 18819422 (Version 1)
Quarter: 2021Q1

REPORT INFORMATION
  Report Type: Spontaneous
  Country: AU (occurrence: AU)
  Receive Date: 20210202
  Receipt Date: 20210202
  Transmission Date: 20210419
  Serious: Yes (Hospitalization, Other)
  Sender: FDA-Public Use
  Company Number: AU-NOVAST LABORATORIES LTD.-2021NOV000014

PATIENT
  Age: 80 Year
  Sex: Male

DRUGS (8)
  1. MIRTAZEPINE [Concomitant]
     Active Substance: MIRTAZAPINE
     Indication: GLAUCOMA
     Dosage: 30 MILLIGRAM
     Route: 048
  2. FENTANYL. [Concomitant]
     Active Substance: FENTANYL
     Indication: GLAUCOMA
     Dosage: UNK UNKNOWN
     Route: 065
  3. KETOROLAC [Concomitant]
     Active Substance: KETOROLAC TROMETHAMINE
     Indication: GLAUCOMA
     Dosage: UNK UNKNOWN
     Route: 031
  4. PREDNEFRIN [Concomitant]
     Indication: GLAUCOMA
     Dosage: UNK UNKNOWN
     Route: 031
  5. CEPHAZOLIN [Concomitant]
     Active Substance: CEFAZOLIN
     Indication: GLAUCOMA
     Dosage: UNK UNKNOWN, INTRA CAMERAL
  6. LATANOPROST. [Concomitant]
     Active Substance: LATANOPROST
     Indication: GLAUCOMA
     Dosage: UNK UNKNOWN
     Route: 031
  7. ACETAZOLAMIDE. [Suspect]
     Active Substance: ACETAZOLAMIDE
     Indication: GLAUCOMA
     Dosage: 250 MILLIGRAM, TID
     Route: 048
  8. CHLORAMPHENICOL [Concomitant]
     Active Substance: CHLORAMPHENICOL
     Indication: GLAUCOMA
     Dosage: UNK UNKNOWN
     Route: 031

REACTIONS (1)
  - Drug reaction with eosinophilia and systemic symptoms [Recovering/Resolving]
